FAERS Safety Report 14639916 (Version 1)
Quarter: 2018Q1

REPORT INFORMATION
  Report Type: Spontaneous
  Country: US (occurrence: US)
  Receive Date: 20180314
  Receipt Date: 20180314
  Transmission Date: 20180509
  Serious: No
  Sender: FDA-Public Use
  Company Number: None

PATIENT
  Age: 69 Year
  Sex: Female

DRUGS (2)
  1. AFINITOR [Suspect]
     Active Substance: EVEROLIMUS
     Indication: BREAST CANCER
     Route: 048
     Dates: start: 20180228
  2. DEXAMETHASONE. [Suspect]
     Active Substance: DEXAMETHASONE
     Indication: BREAST CANCER
     Dosage: 0.5MG/5ML SWISH + SPIT 10MG FOUR TIMES DAILY
     Dates: start: 20180228

REACTIONS (5)
  - Oral fungal infection [None]
  - Fungal skin infection [None]
  - Eating disorder [None]
  - Dysgeusia [None]
  - Stomatitis [None]

NARRATIVE: CASE EVENT DATE: 20180309
